FAERS Safety Report 5578596-6 (Version None)
Quarter: 2007Q4

REPORT INFORMATION
  Report Type: 
  Country: None (occurrence: None)
  Receive Date: 20071231
  Receipt Date: 20071224
  Transmission Date: 20080405
  Serious: Yes (Other)
  Sender: FDA-Public Use
  Company Number: PHBS2007IT21519

PATIENT
  Age: 64 Year
  Sex: Male

DRUGS (5)
  1. THALIDOMIDE [Concomitant]
     Dosage: 50 MG, UNK
  2. GLYBURIDE AND METFORMIN HCL [Concomitant]
     Dosage: 5/500 MG
  3. ASPIRIN [Concomitant]
     Dosage: 100 MG, UNK
  4. SOLU-MEDROL [Concomitant]
  5. ZOMETA [Suspect]
     Indication: MULTIPLE MYELOMA
     Route: 042
     Dates: start: 20050622, end: 20070502

REACTIONS (2)
  - HYPERBARIC OXYGEN THERAPY [None]
  - OSTEONECROSIS [None]
